FAERS Safety Report 11375391 (Version 1)
Quarter: 2015Q3

REPORT INFORMATION
  Report Type: Spontaneous
  Country: US (occurrence: US)
  Receive Date: 20150813
  Receipt Date: 20150813
  Transmission Date: 20151125
  Serious: Yes (Hospitalization, Other)
  Sender: FDA-Public Use
  Company Number: US-009507513-1508USA001622

PATIENT
  Age: 58 Year
  Sex: Female

DRUGS (2)
  1. ZETIA [Suspect]
     Active Substance: EZETIMIBE
     Indication: BLOOD TRIGLYCERIDES INCREASED
  2. ZETIA [Suspect]
     Active Substance: EZETIMIBE
     Indication: BLOOD CHOLESTEROL INCREASED
     Dosage: 10 MG, UNK
     Route: 048
     Dates: start: 20130326, end: 20140419

REACTIONS (16)
  - Faeces discoloured [Recovering/Resolving]
  - Nausea [Recovering/Resolving]
  - Blood triglycerides increased [Recovering/Resolving]
  - Respiratory distress [Recovering/Resolving]
  - Infection [Recovering/Resolving]
  - Retching [Recovering/Resolving]
  - Alopecia [Recovering/Resolving]
  - Thrombosis [Recovering/Resolving]
  - Abdominal discomfort [Recovering/Resolving]
  - Decreased appetite [Recovering/Resolving]
  - Pancreatic insufficiency [Recovering/Resolving]
  - Abdominal distension [Recovering/Resolving]
  - Dyspepsia [Recovering/Resolving]
  - Gastrointestinal disorder [Recovering/Resolving]
  - Blood triglycerides increased [Recovering/Resolving]
  - Coma [Recovering/Resolving]

NARRATIVE: CASE EVENT DATE: 201308
